FAERS Safety Report 5070031-X (Version None)
Quarter: 2006Q3

REPORT INFORMATION
  Report Type: 
  Country: None (occurrence: None)
  Receive Date: 20060731
  Receipt Date: 20060718
  Transmission Date: 20061208
  Serious: Yes (Other)
  Sender: FDA-Public Use
  Company Number: 2006089129

PATIENT
  Age: 40 Year
  Sex: Female

DRUGS (5)
  1. LYRICA [Suspect]
     Indication: NEURALGIA
     Dosage: 75 MG
     Dates: end: 20060712
  2. EFFEXOR [Concomitant]
  3. AMOXICILLIN TRIHYDRATE [Concomitant]
  4. CLIMASTON (DYDROGESTERONE, ESTRADIOL VALERATE) [Concomitant]
  5. MORPHINE SULFATE [Concomitant]

REACTIONS (3)
  - DYSSTASIA [None]
  - HYPERSENSITIVITY [None]
  - MUSCULAR WEAKNESS [None]
